FAERS Safety Report 7935097-5 (Version None)
Quarter: 2011Q4

REPORT INFORMATION
  Report Type: 
  Country: None (occurrence: None)
  Receive Date: 20111117
  Receipt Date: 20111109
  Transmission Date: 20120403
  Serious: Yes (Death)
  Sender: FDA-Public Use
  Company Number: DSA_45563_2011

PATIENT
  Sex: Female
  Weight: 52.1637 kg

DRUGS (2)
  1. XENAZINE [Suspect]
     Indication: TARDIVE DYSKINESIA
     Dosage: (12.5 MG TID ORAL), (12.5 MG BID ORAL)
     Route: 048
     Dates: start: 20110523, end: 20110101
  2. NEXIUM [Concomitant]

REACTIONS (2)
  - CONVULSION [None]
  - INSOMNIA [None]
